FAERS Safety Report 9806164 (Version 3)
Quarter: 2014Q2

REPORT INFORMATION
  Report Type: Spontaneous
  Country: US (occurrence: US)
  Receive Date: 20140109
  Receipt Date: 20140613
  Transmission Date: 20141212
  Serious: Yes (Hospitalization)
  Sender: FDA-Public Use
  Company Number: US-PFIZER INC-2014006158

PATIENT
  Age: 57 Year
  Sex: Female

DRUGS (1)
  1. XALKORI [Suspect]
     Indication: LUNG NEOPLASM MALIGNANT
     Dosage: 250 MG, 2X/DAY
     Route: 048

REACTIONS (4)
  - Sepsis [Recovering/Resolving]
  - Face oedema [Unknown]
  - Oedema peripheral [Unknown]
  - Diarrhoea [Unknown]
